FAERS Safety Report 23308599 (Version 1)
Quarter: 2023Q4

REPORT INFORMATION
  Report Type: Spontaneous
  Country: US (occurrence: US)
  Receive Date: 20231218
  Receipt Date: 20231218
  Transmission Date: 20240109
  Serious: Yes (Disabling, Other)
  Sender: FDA-Public Use
  Company Number: US-TEVA-VS-3135533

PATIENT
  Age: 37 Year

DRUGS (3)
  1. CLARAVIS [Suspect]
     Active Substance: ISOTRETINOIN
     Indication: Product used for unknown indication
     Route: 065
     Dates: start: 20230715, end: 20230726
  2. BENADRYL [Concomitant]
     Active Substance: DIPHENHYDRAMINE HYDROCHLORIDE
  3. CLARITIN [Concomitant]
     Active Substance: LORATADINE

REACTIONS (12)
  - Disability [Unknown]
  - Insomnia [Recovered/Resolved]
  - Palpitations [Recovered/Resolved]
  - Toothache [Unknown]
  - Liver injury [Unknown]
  - Dry eye [Not Recovered/Not Resolved]
  - Anxiety [Unknown]
  - Dysgeusia [Not Recovered/Not Resolved]
  - Hallucination, visual [Recovered/Resolved]
  - Dyskinesia [Recovered/Resolved]
  - Heart rate increased [Not Recovered/Not Resolved]
  - Paraesthesia [Not Recovered/Not Resolved]

NARRATIVE: CASE EVENT DATE: 20230701
